FAERS Safety Report 8868460 (Version 1)
Quarter: 2012Q4

REPORT INFORMATION
  Report Type: 
  Country: US (occurrence: US)
  Receive Date: 20121025
  Receipt Date: 20121025
  Transmission Date: 20130627
  Serious: No
  Sender: FDA-Public Use
  Company Number: US-AMGEN-USASP2012019754

PATIENT
  Age: 24 Year
  Sex: Female
  Weight: 86.17 kg

DRUGS (3)
  1. ENBREL [Suspect]
     Indication: PSORIASIS
     Dosage: 50 mg, 2 times/wk
     Route: 058
  2. SYNTHROID [Concomitant]
     Dosage: 100 mug, UNK
     Route: 048
  3. ALBUTEROL                          /00139501/ [Concomitant]
     Dosage: 90 mug, UNK

REACTIONS (2)
  - Headache [Unknown]
  - Injection site reaction [Unknown]
